FAERS Safety Report 18999184 (Version 1)
Quarter: 2021Q1

REPORT INFORMATION
  Report Type: Spontaneous
  Country: ES (occurrence: ES)
  Receive Date: 20210312
  Receipt Date: 20210312
  Transmission Date: 20210420
  Serious: Yes (Death, Other)
  Sender: FDA-Public Use
  Company Number: ES-LUPIN PHARMACEUTICALS INC.-2021-03233

PATIENT
  Sex: Female

DRUGS (5)
  1. PROGESTERONE. [Suspect]
     Active Substance: PROGESTERONE
     Indication: POSTPONEMENT OF PRETERM DELIVERY
     Dosage: UNK
     Route: 064
  2. MAGNESIUM SULFATE. [Suspect]
     Active Substance: MAGNESIUM SULFATE
     Indication: PROPHYLAXIS OF NEURAL TUBE DEFECT
     Dosage: UNK
     Route: 064
  3. INDOMETHACIN [INDOMETACIN] [Suspect]
     Active Substance: INDOMETHACIN
     Indication: POSTPONEMENT OF PRETERM DELIVERY
     Dosage: UNK
     Route: 064
  4. BETAMETHASONE. [Suspect]
     Active Substance: BETAMETHASONE
     Indication: MATERNAL THERAPY TO ENHANCE FOETAL LUNG MATURITY
     Dosage: UNK
     Route: 064
  5. ATOSIBAN [Suspect]
     Active Substance: ATOSIBAN
     Indication: PREMATURE LABOUR
     Dosage: UNK
     Route: 064

REACTIONS (6)
  - Premature baby [Unknown]
  - Septic shock [Fatal]
  - Intraventricular haemorrhage [Unknown]
  - Dry gangrene [Unknown]
  - Foetal exposure during pregnancy [Unknown]
  - Shock haemorrhagic [Fatal]
